FAERS Safety Report 8582638-3 (Version None)
Quarter: 2012Q3

REPORT INFORMATION
  Report Type: 
  Country: None (occurrence: None)
  Receive Date: 20120809
  Receipt Date: 20120803
  Transmission Date: 20120928
  Serious: Yes (Other)
  Sender: FDA-Public Use
  Company Number: GB-JNJFOC-20120705919

PATIENT
  Sex: Male

DRUGS (2)
  1. ROGAINE EXTRA STRENGTH (FOR MEN) [Suspect]
     Route: 065
  2. ROGAINE EXTRA STRENGTH (FOR MEN) [Suspect]
     Indication: PRODUCT USED FOR UNKNOWN INDICATION
     Route: 065
     Dates: end: 20110101

REACTIONS (14)
  - DEPRESSION [None]
  - ERECTILE DYSFUNCTION [None]
  - DRUG INEFFECTIVE [None]
  - RASH MACULAR [None]
  - ANXIETY [None]
  - HAIR GROWTH ABNORMAL [None]
  - HYPOTHALAMO-PITUITARY DISORDER [None]
  - SKIN DISCOLOURATION [None]
  - ALOPECIA [None]
  - HAIR DISORDER [None]
  - SUICIDAL IDEATION [None]
  - HAIR TEXTURE ABNORMAL [None]
  - SKIN DISORDER [None]
  - BLOOD IRON DECREASED [None]
